FAERS Safety Report 24183344 (Version 3)
Quarter: 2024Q3

REPORT INFORMATION
  Report Type: Report from Study
  Country: CN (occurrence: CN)
  Receive Date: 20240807
  Receipt Date: 20240918
  Transmission Date: 20241017
  Serious: Yes (Hospitalization, Other)
  Sender: ACCORD
  Company Number: CN-Accord-438917

PATIENT
  Age: 61 Year
  Sex: Male
  Weight: 63.0 kg

DRUGS (15)
  1. FLUOROURACIL [Suspect]
     Active Substance: FLUOROURACIL
     Indication: Colorectal cancer metastatic
     Dosage: OVER 46-48 HOURS, EVERY 2 WEEKS ON DAY 1, 15, 29 OF EACH 6 WEEK CYCLE
     Route: 042
     Dates: start: 20240605, end: 20240705
  2. OXALIPLATIN [Suspect]
     Active Substance: OXALIPLATIN
     Indication: Colorectal cancer metastatic
     Dosage: EVERY 2 WEEKS ON DAY 1, 15, 29 OF EACH 6 WEEK (42-DAY) CYCLE
     Route: 042
     Dates: start: 20240605, end: 20240703
  3. TRASTUZUMAB [Suspect]
     Active Substance: TRASTUZUMAB
     Indication: Colorectal cancer metastatic
     Dosage: ON DAY 1 OF EVERY 3 WEEKS (Q3W) (SINGLE LOADING DOSE 8 MG/KG ON C1D1
     Route: 042
     Dates: start: 20240619, end: 20240710
  4. TUCATINIB [Suspect]
     Active Substance: TUCATINIB
     Indication: Colorectal cancer metastatic
     Route: 048
     Dates: start: 20240619, end: 20240716
  5. LEUCOVORIN CALCIUM [Concomitant]
     Active Substance: LEUCOVORIN CALCIUM
     Indication: Colorectal cancer metastatic
     Dosage: EVERY 2 WEEKS ON DAY 1, 15 AND 29 OF EACH 6-WEEK CYCLE
     Route: 042
     Dates: start: 20240605, end: 20240703
  6. LOPERAMIDE [Concomitant]
     Active Substance: LOPERAMIDE
     Indication: Colorectal cancer metastatic
     Dosage: DAY 1 TO 14 FOLLOWED BY 4 MG TWICE DAILY (DAY 15 THROUGH 42)
     Route: 065
     Dates: start: 20240619, end: 20240625
  7. VITAMIN B6 [Concomitant]
     Active Substance: PYRIDOXINE HYDROCHLORIDE
     Indication: Prophylaxis
     Dates: start: 20240703, end: 20240705
  8. ESOMEPRAZOLE SODIUM [Concomitant]
     Active Substance: ESOMEPRAZOLE SODIUM
     Indication: Prophylaxis
     Dates: start: 20240703, end: 20240705
  9. DEXAMETHASONE SODIUM PHOSPHATE [Concomitant]
     Active Substance: DEXAMETHASONE PHOSPHATE\DEXAMETHASONE SODIUM PHOSPHATE
     Indication: Prophylaxis
     Dates: start: 20240703, end: 20240710
  10. METOCLOPRAMIDE [Concomitant]
     Active Substance: METOCLOPRAMIDE
     Indication: Prophylaxis of nausea and vomiting
     Dates: start: 20240703, end: 20240703
  11. PALONOSETRON HYDROCHLORIDE [Concomitant]
     Active Substance: PALONOSETRON HYDROCHLORIDE
     Indication: Prophylaxis of nausea and vomiting
     Dates: start: 20240703, end: 20240703
  12. PROMETHAZINE HYDROCHLORIDE [Concomitant]
     Active Substance: PROMETHAZINE HYDROCHLORIDE
     Indication: Prophylaxis
     Dates: start: 20240710, end: 20240710
  13. LACTULOSE [Concomitant]
     Active Substance: LACTULOSE
     Indication: Constipation
     Route: 048
     Dates: start: 20240704, end: 20240708
  14. TRASTUZUMAB [Suspect]
     Active Substance: TRASTUZUMAB
     Indication: Colorectal cancer metastatic
     Dosage: ON CYCLE 1 DAY 22 THEN DAY 1 AND DAY 22 OF EACH SUBSEQUENT 6-WEEK (42-DAY) CYCLE
     Route: 042
     Dates: start: 20240619, end: 20240710
  15. FLUOROURACIL [Suspect]
     Active Substance: FLUOROURACIL
     Indication: Colorectal cancer metastatic
     Dosage: OVER 46-48 HOURS, EVERY 2 WEEKS ON DAY 1, 15, 29 OF EACH 6 WEEK CYCLE
     Route: 042
     Dates: start: 20240605, end: 20240705

REACTIONS (2)
  - Alanine aminotransferase increased [Recovered/Resolved]
  - Aspartate aminotransferase increased [Recovered/Resolved]

NARRATIVE: CASE EVENT DATE: 20240716
